FAERS Safety Report 12741973 (Version 1)
Quarter: 2016Q3

REPORT INFORMATION
  Report Type: Spontaneous
  Country: US (occurrence: US)
  Receive Date: 20160914
  Receipt Date: 20160914
  Transmission Date: 20161109
  Serious: Yes (Other)
  Sender: FDA-Public Use
  Company Number: US-BRISTOL-MYERS SQUIBB COMPANY-BMS-2016-073859

PATIENT
  Sex: Female
  Weight: 72.57 kg

DRUGS (1)
  1. OPDIVO [Suspect]
     Active Substance: NIVOLUMAB
     Indication: NON-SMALL CELL LUNG CANCER
     Dosage: 223 MG, Q2WK
     Route: 041
     Dates: start: 201504

REACTIONS (4)
  - Blood thyroid stimulating hormone increased [Unknown]
  - Fatigue [Unknown]
  - Osteoporosis [Unknown]
  - Nephropathy [Unknown]
